FAERS Safety Report 14650395 (Version 4)
Quarter: 2021Q1

REPORT INFORMATION
  Report Type: Spontaneous
  Country: JP (occurrence: JP)
  Receive Date: 20180316
  Receipt Date: 20210203
  Transmission Date: 20210419
  Serious: Yes (Hospitalization, Other)
  Sender: FDA-Public Use
  Company Number: JP-SHIRE-JP201809590

PATIENT
  Age: 55 Year
  Sex: Male

DRUGS (14)
  1. LIALDA [Suspect]
     Active Substance: MESALAMINE
     Indication: COLITIS ULCERATIVE
     Dosage: 4800 MG, ONCE DAY
     Route: 048
     Dates: start: 20170810
  2. PREDNISOLONE. [Suspect]
     Active Substance: PREDNISOLONE
     Dosage: 12.5 MILLIGRAM, QD
     Route: 042
  3. PREDNISOLONE. [Suspect]
     Active Substance: PREDNISOLONE
     Dosage: 10.5 MILLIGRAM, QD
     Route: 042
     Dates: start: 20180131
  4. PREDNISOLONE. [Suspect]
     Active Substance: PREDNISOLONE
     Indication: PRODUCT USED FOR UNKNOWN INDICATION
     Dosage: 7.5 TO 60 MG, 1X/DAY:QD
     Route: 042
     Dates: start: 20170811, end: 20170813
  5. PREDNISOLONE. [Suspect]
     Active Substance: PREDNISOLONE
     Dosage: 30 MILLIGRAM, QD
     Route: 042
     Dates: start: 20170814
  6. PREDNISOLONE. [Suspect]
     Active Substance: PREDNISOLONE
     Dosage: 30 MILLIGRAM, QD
     Route: 042
     Dates: start: 20171125
  7. HUMIRA [Suspect]
     Active Substance: ADALIMUMAB
     Dosage: 40 MG, 1X/DAY:QD
     Route: 058
  8. AZATHIOPRINE. [Concomitant]
     Active Substance: AZATHIOPRINE
     Dosage: 25 MILLIGRAM, QD
     Route: 065
     Dates: end: 201708
  9. PREDNISOLONE. [Suspect]
     Active Substance: PREDNISOLONE
     Dosage: 7.5 MILLIGRAM, QD
     Route: 042
     Dates: start: 20180226
  10. PREDNISOLONE. [Suspect]
     Active Substance: PREDNISOLONE
     Dosage: 10 MILLIGRAM, QD
     Route: 042
     Dates: start: 20180214
  11. HUMIRA [Suspect]
     Active Substance: ADALIMUMAB
     Indication: PRODUCT USED FOR UNKNOWN INDICATION
     Dosage: 160 MG, 1X/DAY:QD
     Route: 058
     Dates: start: 201708
  12. AZATHIOPRINE. [Concomitant]
     Active Substance: AZATHIOPRINE
     Dosage: 50 MILLIGRAM, QD
     Route: 065
     Dates: start: 201708
  13. HUMIRA [Suspect]
     Active Substance: ADALIMUMAB
     Dosage: 80 MG, 1X/DAY:QD
     Route: 058
  14. PENTASA [Concomitant]
     Active Substance: MESALAMINE
     Indication: COLITIS ULCERATIVE
     Dosage: UNK

REACTIONS (4)
  - Pyoderma gangrenosum [Recovered/Resolved]
  - Deep vein thrombosis [Not Recovered/Not Resolved]
  - Colitis ulcerative [Recovering/Resolving]
  - Condition aggravated [Recovered/Resolved]

NARRATIVE: CASE EVENT DATE: 20171124
